FAERS Safety Report 4506217-X (Version None)
Quarter: 2004Q4

REPORT INFORMATION
  Report Type: 
  Country: None (occurrence: None)
  Receive Date: 20041119
  Receipt Date: 20030609
  Transmission Date: 20050328
  Serious: Yes (Hospitalization, Disabling)
  Sender: FDA-Public Use
  Company Number: US-MERCK-0306USA01133

PATIENT
  Age: 56 Year
  Sex: Male
  Weight: 91 kg

DRUGS (26)
  1. TENORMIN [Concomitant]
     Route: 065
  2. VIOXX [Suspect]
     Indication: BACK PAIN
     Route: 048
     Dates: start: 19991122, end: 20001105
  3. VIOXX [Suspect]
     Route: 048
     Dates: start: 20000606, end: 20010501
  4. VIOXX [Suspect]
     Route: 048
     Dates: start: 20010629
  5. VIOXX [Suspect]
     Route: 065
     Dates: start: 20010526, end: 20010621
  6. VIOXX [Suspect]
     Indication: OSTEOARTHRITIS
     Route: 048
     Dates: start: 19991122, end: 20001105
  7. VIOXX [Suspect]
     Route: 048
     Dates: start: 20000606, end: 20010501
  8. VIOXX [Suspect]
     Route: 048
     Dates: start: 20010629
  9. VIOXX [Suspect]
     Route: 065
     Dates: start: 20010526, end: 20010621
  10. DIOVAN [Concomitant]
     Route: 065
     Dates: start: 20000801, end: 20010501
  11. PROPECIA [Concomitant]
     Route: 065
  12. ATENOLOL [Concomitant]
     Route: 065
     Dates: start: 19970401
  13. NORCO [Concomitant]
     Route: 065
     Dates: start: 20000203
  14. CHLORTHALIDONE [Concomitant]
     Route: 065
  15. CELEBREX [Concomitant]
     Route: 065
     Dates: start: 19990728, end: 20000201
  16. CELEBREX [Concomitant]
     Route: 065
     Dates: start: 20010621
  17. CYCLOBENZAPRINE HYDROCHLORIDE [Concomitant]
     Route: 065
  18. ULTRAM [Concomitant]
     Route: 065
  19. HYDROCODONE HYDROCHLORIDE [Concomitant]
     Route: 065
  20. [THERAPY UNSPECIFIED] [Concomitant]
     Route: 065
     Dates: start: 19990101
  21. AVANDIA [Concomitant]
     Route: 065
  22. GLUCOVANCE [Concomitant]
     Route: 065
     Dates: start: 20000101
  23. HYGROTON [Concomitant]
     Route: 065
     Dates: end: 20000215
  24. CARDIZEM [Concomitant]
     Route: 065
     Dates: start: 19990101
  25. ALTACE [Concomitant]
     Route: 065
  26. ASPIRIN [Concomitant]
     Route: 065

REACTIONS (24)
  - ACUTE MYOCARDIAL INFARCTION [None]
  - APNOEA [None]
  - ARTHRITIS [None]
  - CARDIAC VALVE DISEASE [None]
  - CORONARY ARTERY DISEASE [None]
  - CORONARY ARTERY RESTENOSIS [None]
  - DIABETES MELLITUS [None]
  - DIVERTICULITIS [None]
  - DYSPNOEA [None]
  - EMOTIONAL DISTRESS [None]
  - FACET JOINT SYNDROME [None]
  - HAND FRACTURE [None]
  - HOARSENESS [None]
  - HYPERLIPIDAEMIA [None]
  - HYPERTENSION [None]
  - INSOMNIA [None]
  - INTERVERTEBRAL DISC PROTRUSION [None]
  - LUMBAR SPINAL STENOSIS [None]
  - MUSCLE STRAIN [None]
  - NERVOUSNESS [None]
  - PNEUMOTHORAX [None]
  - RAYNAUD'S PHENOMENON [None]
  - RESPIRATORY FAILURE [None]
  - SOMNOLENCE [None]
